FAERS Safety Report 5497862-6 (Version None)
Quarter: 2007Q4

REPORT INFORMATION
  Report Type: 
  Country: None (occurrence: None)
  Receive Date: 20071023
  Receipt Date: 20071004
  Transmission Date: 20080405
  Serious: Yes (Hospitalization)
  Sender: FDA-Public Use
  Company Number: NL200709000091

PATIENT
  Age: 78 Year
  Sex: Male
  Weight: 90 kg

DRUGS (6)
  1. ETOPOSIDE [Suspect]
     Indication: SMALL CELL LUNG CANCER EXTENSIVE STAGE
     Dosage: 100 MG/M2, DAY 1, 2 + 3 OF A 21 DAY CYCLE; INTRAVENOUS
     Route: 042
     Dates: start: 20070703
  2. CARBOPLATIN [Suspect]
     Indication: SMALL CELL LUNG CANCER EXTENSIVE STAGE
     Dosage: 5 AUC, DAY 1 OF 21 DAY CYCLE; INTRAVENOUS
     Route: 042
     Dates: start: 20070703
  3. DEPAKINE (VALPROATE SODIUM) UNKNOWN [Concomitant]
  4. FOLIC ACID (FOLIC ACID) UNKNOWN [Concomitant]
  5. VITAMIN B12 (CYANOCOBALAMIN) UNKNOWN [Concomitant]
  6. DEXAMETHASONE [Concomitant]

REACTIONS (2)
  - DISEASE PROGRESSION [None]
  - PNEUMONITIS [None]
